FAERS Safety Report 15785619 (Version 1)
Quarter: 2019Q1

REPORT INFORMATION
  Report Type: Spontaneous
  Country: IL (occurrence: IL)
  Receive Date: 20190103
  Receipt Date: 20190103
  Transmission Date: 20190417
  Serious: Yes (Hospitalization)
  Sender: FDA-Public Use
  Company Number: IL-TEVA-2018-IL-993745

PATIENT
  Age: 74 Year
  Sex: Male

DRUGS (3)
  1. DOPICAR [Concomitant]
     Active Substance: CARBIDOPA\LEVODOPA
  2. AZILECT [Suspect]
     Active Substance: RASAGILINE MESYLATE
     Indication: PARKINSONISM
     Route: 065
  3. KEMADRIN [Concomitant]
     Active Substance: PROCYCLIDINE HYDROCHLORIDE

REACTIONS (4)
  - Confusional state [Unknown]
  - Hallucination, auditory [Unknown]
  - Condition aggravated [Unknown]
  - Abnormal behaviour [Unknown]
